FAERS Safety Report 6572758-7 (Version None)
Quarter: 2010Q1

REPORT INFORMATION
  Report Type: 
  Country: None (occurrence: None)
  Receive Date: 20100205
  Receipt Date: 20100204
  Transmission Date: 20100710
  Serious: Yes (Death, Other)
  Sender: FDA-Public Use
  Company Number: AU-WYE-G05508310

PATIENT
  Sex: Male

DRUGS (1)
  1. TORISEL [Suspect]
     Indication: RENAL CANCER METASTATIC
     Dosage: UNKNOWN
     Dates: start: 20091127, end: 20100120

REACTIONS (3)
  - CYTOKINE RELEASE SYNDROME [None]
  - DISEASE PROGRESSION [None]
  - METASTASES TO LUNG [None]
